FAERS Safety Report 6664286-5 (Version None)
Quarter: 2010Q2

REPORT INFORMATION
  Report Type: 
  Country: None (occurrence: None)
  Receive Date: 20100401
  Receipt Date: 20100322
  Transmission Date: 20101027
  Serious: Yes (Death)
  Sender: FDA-Public Use
  Company Number: US-ELI_LILLY_AND_COMPANY-US201003005892

PATIENT
  Sex: Male
  Weight: 97.506 kg

DRUGS (5)
  1. ZYPREXA [Suspect]
     Indication: DEPRESSION
     Dosage: 30 MG, UNK
     Dates: start: 20070401, end: 20071101
  2. HALDOL [Concomitant]
     Dates: start: 20070401, end: 20071101
  3. DEPAKOTE [Concomitant]
     Dates: start: 20010501
  4. ZOLOFT [Concomitant]
     Dates: start: 20070401, end: 19110701
  5. EFFEXOR [Concomitant]
     Dates: start: 20010501

REACTIONS (2)
  - DEATH [None]
  - OVERDOSE [None]
